FAERS Safety Report 21791796 (Version 1)
Quarter: 2022Q4

REPORT INFORMATION
  Report Type: Report from Study
  Country: CO (occurrence: CO)
  Receive Date: 20221229
  Receipt Date: 20221229
  Transmission Date: 20230112
  Serious: Yes (Hospitalization, Other)
  Sender: FDA-Public Use
  Company Number: CO-ABBVIE-4252269

PATIENT
  Age: 60 Year
  Sex: Female
  Weight: 67 kg

DRUGS (1)
  1. ZEMPLAR [Suspect]
     Active Substance: PARICALCITOL
     Indication: Hyperparathyroidism secondary
     Dosage: FREQUENCY TEXT: POST-DIALYSIS
     Route: 042
     Dates: start: 20140320

REACTIONS (6)
  - Angina unstable [Recovering/Resolving]
  - Complication associated with device [Recovering/Resolving]
  - Haemoglobin decreased [Recovering/Resolving]
  - Malaise [Recovering/Resolving]
  - Catheter site infection [Recovering/Resolving]
  - Catheter site haemorrhage [Recovering/Resolving]

NARRATIVE: CASE EVENT DATE: 20221201
